FAERS Safety Report 5065913-9 (Version None)
Quarter: 2006Q3

REPORT INFORMATION
  Report Type: 
  Country: None (occurrence: None)
  Receive Date: 20060731
  Receipt Date: 20060727
  Transmission Date: 20061208
  Serious: Yes (Death)
  Sender: FDA-Public Use
  Company Number: PHFR2006GB02353

PATIENT
  Age: 34 Year
  Sex: Female

DRUGS (3)
  1. MIRTAZAPINE [Concomitant]
     Route: 065
  2. TEMAZEPAM [Concomitant]
     Route: 065
  3. CLOZAPINE [Suspect]
     Indication: SCHIZOPHRENIA
     Dosage: 400 MG/DAY
     Route: 048
     Dates: start: 20051213

REACTIONS (7)
  - ARRHYTHMIA [None]
  - CARDIOTOXICITY [None]
  - DRUG LEVEL ABOVE THERAPEUTIC [None]
  - EOSINOPHILIA [None]
  - HYPERSENSITIVITY [None]
  - SUDDEN DEATH [None]
  - TYPE II HYPERSENSITIVITY [None]
